FAERS Safety Report 9193093 (Version 1)
Quarter: 2013Q1

REPORT INFORMATION
  Report Type: Spontaneous
  Country: FR (occurrence: FR)
  Receive Date: 20130327
  Receipt Date: 20130327
  Transmission Date: 20140127
  Serious: Yes (Hospitalization)
  Sender: FDA-Public Use
  Company Number: FR-SANOFI-AVENTIS-2013SA030616

PATIENT
  Age: 49 Year
  Sex: Female

DRUGS (12)
  1. LASILIX [Suspect]
     Indication: CARDIAC FAILURE
     Route: 048
     Dates: start: 201204, end: 20120428
  2. LASILIX [Suspect]
     Indication: CARDIAC FAILURE
     Route: 048
  3. ALDACTONE [Suspect]
     Indication: CARDIAC FAILURE
     Dosage: STRENGTH: 25 MG
     Route: 048
     Dates: start: 201204, end: 20120428
  4. ALDACTONE [Suspect]
     Indication: CARDIAC FAILURE
     Dosage: STRENGTH: 25 MG
     Route: 048
  5. ESIDREX [Suspect]
     Indication: CARDIAC FAILURE
     Dosage: STRENGTH: 25 MG
     Route: 048
     Dates: start: 201204, end: 20120428
  6. ESIDREX [Suspect]
     Indication: CARDIAC FAILURE
     Dosage: STRENGTH: 25 MG
     Route: 048
  7. ATACAND [Suspect]
     Indication: CARDIAC FAILURE
     Dosage: STRENGTH: 16 MG
     Route: 048
     Dates: start: 20120419, end: 20120428
  8. ATACAND [Suspect]
     Indication: CARDIAC FAILURE
     Dosage: STRENGTH: 16 MG
     Route: 048
  9. DETENSIEL [Concomitant]
     Route: 048
  10. COUMADINE [Concomitant]
     Dosage: STRENGHT: 5 MG
     Route: 048
  11. HEPARINE [Concomitant]
     Dates: start: 20120419
  12. BISOCE [Concomitant]
     Dates: start: 20120419

REACTIONS (3)
  - Hypovolaemic shock [Recovered/Resolved]
  - Hypotension [Recovered/Resolved]
  - Renal failure acute [Recovered/Resolved]
